FAERS Safety Report 12707572 (Version 2)
Quarter: 2016Q3

REPORT INFORMATION
  Report Type: Report from Study
  Country: KR (occurrence: KR)
  Receive Date: 20160901
  Receipt Date: 20160930
  Transmission Date: 20161109
  Serious: Yes (Hospitalization)
  Sender: FDA-Public Use
  Company Number: KR-PFIZER INC-2016398002

PATIENT
  Age: 66 Year
  Sex: Female
  Weight: 63 kg

DRUGS (8)
  1. LETROZOLE. [Suspect]
     Active Substance: LETROZOLE
     Indication: BREAST CANCER
     Dosage: 2.5 MG, 1X/DAY
     Route: 048
     Dates: start: 20140424
  2. EPERON [Concomitant]
     Indication: MYALGIA
     Dosage: UNK
     Dates: start: 20160727
  3. BONVIVA PLUS [Concomitant]
     Indication: OSTEOPOROSIS
     Dosage: UNK
     Dates: start: 20160407
  4. MELOXICAM. [Concomitant]
     Active Substance: MELOXICAM
     Indication: MYALGIA
     Dosage: UNK
     Route: 048
     Dates: start: 20160727
  5. PALBOCICLIB [Suspect]
     Active Substance: PALBOCICLIB
     Indication: BREAST CANCER
     Dosage: 100 MG, ONCE DAILY, 3 WEEKS ON/ 1 WEEK OFF EVERY 28 DAY CYCLE
     Route: 048
     Dates: start: 20140424, end: 20160808
  6. ROSUZET COMPOSITE PACK [Concomitant]
     Indication: BLOOD CHOLESTEROL INCREASED
     Dosage: 10/10 MG, UNK
     Dates: start: 20160407, end: 20160816
  7. DICAMAX [Concomitant]
     Indication: OSTEOPOROSIS
     Dosage: UNK
     Route: 048
     Dates: start: 20160407
  8. TINOQ [Concomitant]
     Indication: MYALGIA
     Dosage: UNK
     Route: 048
     Dates: start: 20160727

REACTIONS (1)
  - Angina unstable [Recovered/Resolved]

NARRATIVE: CASE EVENT DATE: 201608
